FAERS Safety Report 15920615 (Version 1)
Quarter: 2019Q1

REPORT INFORMATION
  Report Type: Spontaneous
  Country: PT (occurrence: PT)
  Receive Date: 20190205
  Receipt Date: 20190205
  Transmission Date: 20190417
  Serious: Yes (Death, Life-Threatening, Hospitalization)
  Sender: FDA-Public Use
  Company Number: PT-MYLANLABS-2019M1010418

PATIENT
  Age: 66 Year
  Sex: Male

DRUGS (2)
  1. ALLOPURINOL. [Suspect]
     Active Substance: ALLOPURINOL
     Indication: GOUT
     Route: 065
  2. DICLOFENAC [Concomitant]
     Active Substance: DICLOFENAC
     Indication: GOUT
     Route: 065

REACTIONS (11)
  - Metabolic acidosis [Unknown]
  - Circulatory collapse [Fatal]
  - Cytomegalovirus infection [Unknown]
  - Electrocardiogram T wave peaked [Unknown]
  - Acute respiratory failure [Unknown]
  - Hyperkalaemia [Unknown]
  - Pulmonary alveolar haemorrhage [Unknown]
  - Epstein-Barr virus infection [Unknown]
  - Acute kidney injury [Recovered/Resolved]
  - Drug reaction with eosinophilia and systemic symptoms [Unknown]
  - Haemophagocytic lymphohistiocytosis [Fatal]
